FAERS Safety Report 9210523 (Version 2)
Quarter: 2013Q2

REPORT INFORMATION
  Report Type: Spontaneous
  Country: US (occurrence: US)
  Receive Date: 20130404
  Receipt Date: 20130424
  Transmission Date: 20140414
  Serious: Yes (Hospitalization, Other)
  Sender: FDA-Public Use
  Company Number: US-PFIZER INC-2013103086

PATIENT
  Age: 91 Year
  Sex: Female
  Weight: 91.61 kg

DRUGS (1)
  1. VFEND [Suspect]
     Indication: SACROILIITIS
     Dosage: 300 MG, 2X/DAY
     Dates: start: 20130318

REACTIONS (5)
  - Hallucination [Not Recovered/Not Resolved]
  - Condition aggravated [Unknown]
  - Memory impairment [Unknown]
  - Headache [Not Recovered/Not Resolved]
  - Insomnia [Unknown]
